FAERS Safety Report 9217411 (Version 1)
Quarter: 2013Q2

REPORT INFORMATION
  Report Type: Spontaneous
  Country: US (occurrence: US)
  Receive Date: 20130408
  Receipt Date: 20130408
  Transmission Date: 20140414
  Serious: No
  Sender: FDA-Public Use
  Company Number: US-BAYER-2013-044242

PATIENT
  Age: 77 Year
  Sex: Male

DRUGS (1)
  1. ALEVE CAPLET [Suspect]
     Dosage: 2 DF, BID
     Route: 048
     Dates: start: 20130326

REACTIONS (2)
  - Overdose [None]
  - Expired drug administered [None]
